FAERS Safety Report 24905729 (Version 1)
Quarter: 2025Q1

REPORT INFORMATION
  Report Type: Report from Study
  Country: US (occurrence: US)
  Receive Date: 20250130
  Receipt Date: 20250130
  Transmission Date: 20250409
  Serious: No
  Sender: HRA PHARMA
  Company Number: US-ORG100014127-2024000253

PATIENT
  Age: 33 Year
  Sex: Female

DRUGS (24)
  1. METOPIRONE [Suspect]
     Active Substance: METYRAPONE
     Indication: Adrenal gland cancer
     Dosage: 250 MG; 1 CAPSULE FOUR TIMES DAILY
     Route: 048
     Dates: start: 20240416
  2. LYSODREN [Concomitant]
     Active Substance: MITOTANE
     Indication: Adrenal gland cancer
     Dosage: 500 MG; 5 TABLETS EVERY MORNING, 4 TABLETS AT MIDDAY, THEN 4 TABLETS EVERY EVENING
     Route: 048
     Dates: start: 20240509
  3. ATORVASTATIN [Concomitant]
     Active Substance: ATORVASTATIN
     Indication: Product used for unknown indication
  4. Calcium carbonate chew 500mg [Concomitant]
     Indication: Product used for unknown indication
  5. Calcium citrate tablet 200mg [Concomitant]
     Indication: Product used for unknown indication
  6. diltiazem tablet 60mg [Concomitant]
     Indication: Product used for unknown indication
  7. Diphenhydramine capsule 25mg [Concomitant]
     Indication: Product used for unknown indication
  8. enoxaparin injection 80mg/0.8ml [Concomitant]
     Indication: Product used for unknown indication
  9. Ferrous sulfate tablet 325mg [Concomitant]
     Indication: Product used for unknown indication
  10. Folic acid tablet 1000?g [Concomitant]
     Indication: Product used for unknown indication
  11. FUROSEMIDE [Concomitant]
     Active Substance: FUROSEMIDE
     Indication: Product used for unknown indication
  12. Hydrocortisone tablet 10mg [Concomitant]
     Indication: Product used for unknown indication
  13. Lidocaine pad 5% [Concomitant]
     Indication: Product used for unknown indication
  14. Metoprolol succinate ER tablet 200mg [Concomitant]
     Indication: Product used for unknown indication
  15. Morphine sulfate ER tablet 15 mg [Concomitant]
     Indication: Product used for unknown indication
  16. Ondansetron tablet 8mg [Concomitant]
     Indication: Product used for unknown indication
  17. Polyethylene glycol powder 3350 nf [Concomitant]
     Indication: Product used for unknown indication
  18. Potassium chloride powder 20 mEq [Concomitant]
     Indication: Product used for unknown indication
  19. Prochlorperazine tablet 10mg [Concomitant]
     Indication: Product used for unknown indication
  20. Pyridoxine tablet 50mg [Concomitant]
     Indication: Product used for unknown indication
  21. SMZ-TMP DS tablet 800mg-160mg [Concomitant]
     Indication: Product used for unknown indication
  22. Spironolactone tablet 100mg [Concomitant]
     Indication: Product used for unknown indication
  23. Thiamine hydrochloride tablet 100mg [Concomitant]
     Indication: Product used for unknown indication
  24. Tramadol hydrochloride tablet 50mg [Concomitant]
     Indication: Product used for unknown indication

REACTIONS (1)
  - Off label use [Recovered/Resolved]

NARRATIVE: CASE EVENT DATE: 20240416
